FAERS Safety Report 13839618 (Version 1)
Quarter: 2017Q3

REPORT INFORMATION
  Report Type: Spontaneous
  Country: US (occurrence: US)
  Receive Date: 20170805
  Receipt Date: 20170805
  Transmission Date: 20171127
  Serious: Yes (Death)
  Sender: FDA-Public Use
  Company Number: None

PATIENT
  Age: 72 Year
  Sex: Male

DRUGS (1)
  1. METHOTREXATE. [Suspect]
     Active Substance: METHOTREXATE
     Indication: PROPHYLAXIS AGAINST GRAFT VERSUS HOST DISEASE
     Dosage: 10-15 MG/M2 DAILY IV
     Route: 042
     Dates: start: 20161030

REACTIONS (7)
  - Klebsiella infection [None]
  - Haemodynamic instability [None]
  - Pseudomonal bacteraemia [None]
  - Multiple organ dysfunction syndrome [None]
  - Respiratory failure [None]
  - Pneumonia [None]
  - Mucosal inflammation [None]

NARRATIVE: CASE EVENT DATE: 20161030
